FAERS Safety Report 8915919 (Version 4)
Quarter: 2013Q1

REPORT INFORMATION
  Report Type: Spontaneous
  Country: US (occurrence: US)
  Receive Date: 20121119
  Receipt Date: 20130122
  Transmission Date: 20140127
  Serious: Yes (Hospitalization)
  Sender: FDA-Public Use
  Company Number: US-US-EMD SERONO, INC.-7173577

PATIENT
  Age: 41 Year
  Sex: Female
  Weight: 127 kg

DRUGS (8)
  1. REBIF [Suspect]
     Indication: MULTIPLE SCLEROSIS
     Route: 058
     Dates: start: 20121026, end: 20121108
  2. REBIF [Suspect]
     Route: 058
     Dates: start: 20121109, end: 20121112
  3. ELAVIL [Suspect]
     Indication: MIGRAINE
     Route: 048
  4. FIORICET [Suspect]
     Indication: HEADACHE
     Route: 048
  5. TYLENOL [Suspect]
     Indication: PRODUCT USED FOR UNKNOWN INDICATION
  6. METOPROLOL [Concomitant]
     Indication: PRODUCT USED FOR UNKNOWN INDICATION
  7. UNSPECIFIED MEDICATIONS [Concomitant]
     Indication: PRODUCT USED FOR UNKNOWN INDICATION
  8. GABAPENTIN [Concomitant]
     Indication: PARAESTHESIA
     Route: 048

REACTIONS (9)
  - Mallory-Weiss syndrome [Not Recovered/Not Resolved]
  - Gastric ulcer [Not Recovered/Not Resolved]
  - Appendicitis [Not Recovered/Not Resolved]
  - Respiratory distress [Unknown]
  - Incision site infection [Not Recovered/Not Resolved]
  - Hepatomegaly [Unknown]
  - Nausea [Unknown]
  - Vomiting [Unknown]
  - Liver function test abnormal [Not Recovered/Not Resolved]
